FAERS Safety Report 18378674 (Version 2)
Quarter: 2020Q4

REPORT INFORMATION
  Report Type: Spontaneous
  Country: FR (occurrence: FR)
  Receive Date: 20201013
  Receipt Date: 20201021
  Transmission Date: 20210114
  Serious: Yes (Death, Hospitalization, Other)
  Sender: FDA-Public Use
  Company Number: FR-JNJFOC-20201005946

PATIENT
  Age: 18 Year
  Sex: Female

DRUGS (24)
  1. LOTREVE [Suspect]
     Active Substance: OXYBUTYNIN CHLORIDE
     Dosage: 5 MG,TID
     Route: 065
  2. LOTREVE [Suspect]
     Active Substance: OXYBUTYNIN CHLORIDE
     Dosage: 20 MG
     Route: 048
  3. DIAZEPAM. [Concomitant]
     Active Substance: DIAZEPAM
     Dosage: 10MG(1,1,2) DAILY
     Route: 065
  4. HYDROXYZINE [Concomitant]
     Active Substance: HYDROXYZINE HYDROCHLORIDE
     Dosage: 25MG(2,2,2) DAILY
  5. LEVOMEPROMAZINE [Concomitant]
     Active Substance: LEVOMEPROMAZINE
     Dosage: 50,50,100
     Route: 065
  6. PARACETAMOL [Concomitant]
     Active Substance: ACETAMINOPHEN
     Dosage: 200 MG, QD2SDO (0,02)
     Route: 065
  7. SPASFON [Concomitant]
     Indication: PRODUCT USED FOR UNKNOWN INDICATION
     Route: 065
  8. DIAZEPAM. [Concomitant]
     Active Substance: DIAZEPAM
     Dosage: 30 UNK, 1.1.2
     Route: 065
  9. HYDROXYZINE [Concomitant]
     Active Substance: HYDROXYZINE HYDROCHLORIDE
     Indication: PRODUCT USED FOR UNKNOWN INDICATION
     Dosage: 25 MG,TID
     Route: 048
  10. DIAZEPAM. [Concomitant]
     Active Substance: DIAZEPAM
     Dosage: 10 MG,TID
     Route: 065
  11. LEVOMEPROMAZINE [Concomitant]
     Active Substance: LEVOMEPROMAZINE
     Indication: PSYCHIATRIC SYMPTOM
     Dosage: 200MG
     Route: 048
  12. FORLAX [Concomitant]
     Active Substance: POLYETHYLENE GLYCOL 4000
     Dosage: 10 G
     Route: 048
  13. LOTREVE [Suspect]
     Active Substance: OXYBUTYNIN CHLORIDE
     Dosage: 5MG(1,1,2) DAILY
     Route: 048
  14. SPASFON [PHLOROGLUCINOL;TRIMETHYLPHLOROGLUCINOL] [Suspect]
     Active Substance: PHLOROGLUCINOL\1,3,5-TRIMETHOXYBENZENE
     Indication: PSYCHIATRIC SYMPTOM
     Dosage: 1 DF, QD, (INTERMITTENTLY)
     Route: 065
  15. PARACETAMOL [Concomitant]
     Active Substance: ACETAMINOPHEN
     Dosage: 500 MG,QD
     Route: 065
  16. FORLAX [Concomitant]
     Active Substance: POLYETHYLENE GLYCOL 4000
     Indication: PSYCHIATRIC SYMPTOM
     Dosage: 1 PER DAY INTERMITTENTLY
     Route: 065
  17. CLOZAPINE. [Suspect]
     Active Substance: CLOZAPINE
     Indication: PSYCHIATRIC SYMPTOM
     Dosage: 100 MG,TID
     Route: 048
     Dates: start: 201305
  18. HYDROXYZINE [Concomitant]
     Active Substance: HYDROXYZINE HYDROCHLORIDE
     Dosage: 150 UNK
     Route: 048
  19. PARACETAMOL [Concomitant]
     Active Substance: ACETAMINOPHEN
     Indication: PRODUCT USED FOR UNKNOWN INDICATION
     Dosage: 500MG(0,0,2)
     Route: 048
  20. FORLAX [Concomitant]
     Active Substance: POLYETHYLENE GLYCOL 4000
     Dosage: 1 PER DAY INTERMITTENTLY
     Route: 065
  21. DIAZEPAM. [Concomitant]
     Active Substance: DIAZEPAM
     Indication: PSYCHIATRIC SYMPTOM
     Dosage: 40 MG
     Route: 048
  22. NORDAZEPAM [Concomitant]
     Active Substance: NORDAZEPAM
     Dosage: UNK UNK,UNK
     Route: 065
  23. LOTREVE [Suspect]
     Active Substance: OXYBUTYNIN CHLORIDE
     Indication: PRODUCT USED FOR UNKNOWN INDICATION
     Dosage: 4 DF (1,1,2), QD
     Route: 065
  24. PHLOROGLUCINOL [Concomitant]
     Active Substance: PHLOROGLUCINOL
     Indication: PRODUCT USED FOR UNKNOWN INDICATION
     Dosage: UNK UNK,PRN; AS REQUIRED
     Route: 065

REACTIONS (10)
  - Antipsychotic drug level increased [Fatal]
  - Gastrointestinal necrosis [Fatal]
  - Megacolon [Fatal]
  - Haemoperitoneum [Fatal]
  - Necrosis ischaemic [Fatal]
  - Intestinal pseudo-obstruction [Fatal]
  - Intestinal obstruction [Fatal]
  - Intestinal haemorrhage [Fatal]
  - Constipation [Fatal]
  - Toxicity to various agents [Fatal]

NARRATIVE: CASE EVENT DATE: 201308
